FAERS Safety Report 6715173-5 (Version None)
Quarter: 2010Q2

REPORT INFORMATION
  Report Type: 
  Country: None (occurrence: None)
  Receive Date: 20100506
  Receipt Date: 20100506
  Transmission Date: 20101027
  Serious: Yes (Other)
  Sender: FDA-Public Use
  Company Number: None

PATIENT
  Sex: Female
  Weight: 77.1115 kg

DRUGS (2)
  1. SINGULAIR [Suspect]
     Indication: HYPERSENSITIVITY
     Dosage: 1 PILL 10MG 1 PER DAY MOUTH
     Route: 048
     Dates: start: 20100402
  2. SINGULAIR [Suspect]
     Dosage: 1 PILL 10MG 1 PER DAY MOUTH
     Route: 048
     Dates: start: 20100416

REACTIONS (2)
  - BACK PAIN [None]
  - DIZZINESS [None]
